FAERS Safety Report 7161292-1 (Version None)
Quarter: 2010Q4

REPORT INFORMATION
  Report Type: 
  Country: None (occurrence: None)
  Receive Date: 20101210
  Receipt Date: 20101210
  Transmission Date: 20110411
  Serious: Yes (Hospitalization)
  Sender: FDA-Public Use
  Company Number: None

PATIENT
  Age: 55 Year
  Sex: Male
  Weight: 78 kg

DRUGS (1)
  1. ALPROSTADIL [Suspect]
     Indication: ERECTILE DYSFUNCTION
     Dosage: 10 MG ONCE OTHER
     Route: 050
     Dates: start: 20070926, end: 20101206

REACTIONS (1)
  - PRIAPISM [None]
